FAERS Safety Report 17088248 (Version 2)
Quarter: 2019Q4

REPORT INFORMATION
  Report Type: Spontaneous
  Country: AU (occurrence: AU)
  Receive Date: 20191128
  Receipt Date: 20191223
  Transmission Date: 20200122
  Serious: Yes (Death)
  Sender: FDA-Public Use
  Company Number: AU-PFIZER INC-2019509567

PATIENT
  Age: 88 Year
  Sex: Female

DRUGS (3)
  1. MORPHINE SULFATE. [Suspect]
     Active Substance: MORPHINE SULFATE
     Indication: AGITATION
  2. MORPHINE SULFATE. [Suspect]
     Active Substance: MORPHINE SULFATE
     Indication: PAIN
     Dosage: UNK, 2.5 MG - 5 MG 4 HRS
     Route: 058
     Dates: start: 20190926
  3. MORPHINE SULFATE. [Suspect]
     Active Substance: MORPHINE SULFATE
     Indication: DYSPNOEA

REACTIONS (3)
  - Death [Fatal]
  - Contraindicated product administered [Fatal]
  - Organ failure [Fatal]

NARRATIVE: CASE EVENT DATE: 20190926
